FAERS Safety Report 6142146-6 (Version None)
Quarter: 2009Q2

REPORT INFORMATION
  Report Type: 
  Country: None (occurrence: None)
  Receive Date: 20090402
  Receipt Date: 20090323
  Transmission Date: 20091009
  Serious: Yes (Hospitalization)
  Sender: FDA-Public Use
  Company Number: GB-MERCK-0902GBR00084

PATIENT
  Age: 79 Year
  Sex: Female
  Weight: 66 kg

DRUGS (6)
  1. JANUVIA [Suspect]
     Indication: DIABETES MELLITUS
     Route: 048
     Dates: start: 20080801, end: 20090101
  2. BISOPROLOL [Concomitant]
     Indication: ANGINA PECTORIS
     Route: 065
     Dates: start: 20090101
  3. EPLERENONE [Concomitant]
     Indication: LEFT VENTRICULAR DYSFUNCTION
     Route: 065
     Dates: start: 20090101
  4. BUMETANIDE [Concomitant]
     Indication: DIURETIC THERAPY
     Route: 065
  5. ALLOPURINOL [Concomitant]
     Indication: GOUT
     Route: 065
  6. ASPIRIN [Concomitant]
     Indication: ANTIPLATELET THERAPY
     Route: 065

REACTIONS (2)
  - CELLULITIS [None]
  - MYOCARDIAL INFARCTION [None]
